FAERS Safety Report 8822858 (Version 2)
Quarter: 2012Q4

REPORT INFORMATION
  Report Type: Report from Study
  Country: US (occurrence: US)
  Receive Date: 20121003
  Receipt Date: 20121109
  Transmission Date: 20130627
  Serious: Yes (Hospitalization, Other)
  Sender: FDA-Public Use
  Company Number: US-ABBOTT-12P-163-0988251-00

PATIENT
  Age: 20 Year
  Sex: Male
  Weight: 92.62 kg

DRUGS (7)
  1. HUMIRA [Suspect]
     Indication: COLITIS ULCERATIVE
     Dosage: PRE- FILLED SYRINGE 160 mg 22 Aug 2012m 80 mg 05 Sep 2012, 80 mg 19 Sep 2012
     Dates: start: 20120822, end: 20120822
  2. HUMIRA [Suspect]
     Dates: start: 20120905
  3. HUMIRA [Suspect]
  4. ASACOL [Concomitant]
     Indication: PRODUCT USED FOR UNKNOWN INDICATION
     Route: 048
  5. AZATHIOPRINE [Concomitant]
     Indication: PRODUCT USED FOR UNKNOWN INDICATION
  6. CALCIUM WITH VITAMIN D [Concomitant]
     Indication: PRODUCT USED FOR UNKNOWN INDICATION
     Dosage: 600/400 MG
  7. URSODIOL [Concomitant]
     Indication: PRODUCT USED FOR UNKNOWN INDICATION
     Dosage: 3 TABS AM, 2 TAB AT NIGHT

REACTIONS (6)
  - White blood cell count decreased [Recovering/Resolving]
  - Abdominal pain [Recovering/Resolving]
  - Rectal haemorrhage [Recovering/Resolving]
  - Inflammatory marker increased [Recovering/Resolving]
  - Leukopenia [Unknown]
  - Hypersensitivity [Unknown]
